FAERS Safety Report 8271415-9 (Version None)
Quarter: 2012Q2

REPORT INFORMATION
  Report Type: 
  Country: None (occurrence: None)
  Receive Date: 20120410
  Receipt Date: 20120403
  Transmission Date: 20120825
  Serious: Yes (Hospitalization, Other)
  Sender: FDA-Public Use
  Company Number: PHHY2011JP89200

PATIENT
  Age: 58 Year
  Sex: Female

DRUGS (27)
  1. QUETIAPINE FUMARATE [Concomitant]
     Dosage: 750 MG
     Dates: start: 20110725
  2. QUETIAPINE FUMARATE [Concomitant]
     Dosage: 400 MG
     Route: 048
  3. LEVOFLOXACIN [Concomitant]
     Dosage: 500 MG, UNK
     Dates: start: 20110805, end: 20110926
  4. CLOZARIL [Suspect]
     Dosage: 100 MG, DAILY
     Route: 048
     Dates: start: 20110712, end: 20110713
  5. CLOZARIL [Suspect]
     Dosage: 400 MG, DAILY
     Dates: start: 20111108
  6. BLONANSERIN [Concomitant]
     Dosage: 24 MG
     Dates: start: 20110705
  7. CEFCAPENE PIVOXIL HYDROCHLORIDE [Concomitant]
     Dosage: 300 MG
     Dates: start: 20110720, end: 20110725
  8. FOSFOMYCIN CALCIUM [Concomitant]
     Indication: UTERINE CANCER
     Dosage: 3000 MG, UNK
     Route: 048
     Dates: start: 20111122, end: 20111124
  9. CLOZARIL [Suspect]
     Indication: SCHIZOPHRENIA
     Dosage: 500 MG, DAILY
     Route: 048
     Dates: start: 20110705
  10. CLOZARIL [Suspect]
     Dosage: 175 MG, DAILY
     Route: 048
     Dates: start: 20110721, end: 20110722
  11. CLOZARIL [Suspect]
     Dosage: 400 MG, DAILY
     Route: 048
     Dates: start: 20110801, end: 20110804
  12. CLOZARIL [Suspect]
     Dosage: 500 MG, DAILY
     Route: 048
     Dates: start: 20110805, end: 20110808
  13. CLOZARIL [Suspect]
     Dosage: 300 MG, DAILY
     Dates: start: 20111025, end: 20111107
  14. CLOZARIL [Suspect]
     Dosage: 125 MG, DAILY
     Route: 048
     Dates: start: 20110714, end: 20110718
  15. CLOZARIL [Suspect]
     Dosage: 150 MG, DAILY
     Route: 048
     Dates: start: 20110719, end: 20110720
  16. CLOZARIL [Suspect]
     Dosage: 500 MG, DAILY
     Route: 048
     Dates: start: 20110906, end: 20111010
  17. RISPERIDONE [Concomitant]
     Dosage: 09 MG
     Route: 048
     Dates: start: 20110731
  18. RISPERIDONE [Concomitant]
     Dosage: 4.5 MG
     Route: 048
  19. CLOZARIL [Suspect]
     Dosage: 600 MG, DAILY
     Route: 048
     Dates: start: 20110101
  20. CLOZARIL [Suspect]
     Dosage: 200 MG, DAILY
     Route: 048
     Dates: start: 20110723, end: 20110727
  21. CLOZARIL [Suspect]
     Dosage: 600 MG, DAILY
     Route: 048
     Dates: start: 20110809, end: 20110905
  22. LEVOFLOXACIN [Concomitant]
     Dosage: 500 MG, UNK
     Route: 048
  23. CLOZARIL [Suspect]
     Dosage: 25 MG, DAILY
     Route: 048
     Dates: start: 20110705, end: 20110706
  24. CLOZARIL [Suspect]
     Dosage: 50 MG, DAILY
     Route: 048
     Dates: start: 20110707, end: 20110711
  25. CLOZARIL [Suspect]
     Dosage: 300 MG, DAILY
     Route: 048
     Dates: start: 20110728, end: 20110731
  26. CLOZARIL [Suspect]
     Dosage: 400 MG, DAILY
     Route: 048
     Dates: start: 20111011, end: 20111024
  27. BLONANSERIN [Concomitant]
     Dosage: UNK UKN, UNK
     Dates: start: 20110718

REACTIONS (5)
  - C-REACTIVE PROTEIN INCREASED [None]
  - PYELONEPHRITIS [None]
  - URINARY TRACT INFECTION [None]
  - BLOOD CREATININE INCREASED [None]
  - PYREXIA [None]
